FAERS Safety Report 16483261 (Version 1)
Quarter: 2019Q2

REPORT INFORMATION
  Report Type: Spontaneous
  Country: IT (occurrence: IT)
  Receive Date: 20190627
  Receipt Date: 20190627
  Transmission Date: 20190711
  Serious: Yes (Other)
  Sender: FDA-Public Use
  Company Number: IT-PFIZER INC-2019272747

PATIENT
  Age: 18 Year
  Sex: Male
  Weight: 70 kg

DRUGS (3)
  1. PROZAC [Suspect]
     Active Substance: FLUOXETINE HYDROCHLORIDE
     Dosage: 7 DF, SINGLE
     Route: 048
     Dates: start: 20190605, end: 20190605
  2. XANAX [Suspect]
     Active Substance: ALPRAZOLAM
     Dosage: 18 DF, SINGLE
     Route: 048
     Dates: start: 20190605, end: 20190605
  3. RISPERDAL [Suspect]
     Active Substance: RISPERIDONE
     Dosage: 1 DF, SINGLE
     Route: 048
     Dates: start: 20190605, end: 20190605

REACTIONS (3)
  - Sopor [Unknown]
  - Intentional self-injury [Unknown]
  - Intentional overdose [Unknown]

NARRATIVE: CASE EVENT DATE: 20190605
